FAERS Safety Report 6043616-1 (Version None)
Quarter: 2009Q1

REPORT INFORMATION
  Report Type: 
  Country: None (occurrence: None)
  Receive Date: 20090120
  Receipt Date: 20081215
  Transmission Date: 20090719
  Serious: No
  Sender: FDA-Public Use
  Company Number: US-BAYER-200840928NA

PATIENT
  Age: 26 Year
  Sex: Female
  Weight: 77 kg

DRUGS (1)
  1. MIRENA [Suspect]
     Indication: CONTRACEPTION
     Route: 015
     Dates: start: 20080520

REACTIONS (4)
  - ANOREXIA [None]
  - FEELING ABNORMAL [None]
  - GENITAL HAEMORRHAGE [None]
  - NAUSEA [None]
